FAERS Safety Report 18170398 (Version 1)
Quarter: 2020Q3

REPORT INFORMATION
  Report Type: Spontaneous
  Country: DE (occurrence: DE)
  Receive Date: 20200819
  Receipt Date: 20200819
  Transmission Date: 20201103
  Serious: Yes (Life-Threatening, Hospitalization)
  Sender: FDA-Public Use
  Company Number: DE-MYLANLABS-2020M1071258

PATIENT
  Age: 68 Year
  Sex: Male

DRUGS (22)
  1. TAMSULOSIN [Concomitant]
     Active Substance: TAMSULOSIN
     Dosage: 0.4 MG, 1?0?0?0, TABLETTEN
     Route: 048
  2. EZETROL [Concomitant]
     Active Substance: EZETIMIBE
     Dosage: 10 MG, 1?0?0?0, TABLETTEN
     Route: 048
  3. ROSUVASTATIN. [Concomitant]
     Active Substance: ROSUVASTATIN
     Dosage: 40 MG, 0?0?1?0, TABLETTEN
     Route: 048
  4. TECHNETIUM (99M TC) SESTAMIBI [Suspect]
     Active Substance: TECHNETIUM TC-99M SESTAMIBI
     Indication: PRODUCT USED FOR UNKNOWN INDICATION
     Dosage: 403 MBQ, NK
  5. BISOHEXAL PLUS [Suspect]
     Active Substance: BISOPROLOL FUMARATE\HYDROCHLOROTHIAZIDE
     Indication: PRODUCT USED FOR UNKNOWN INDICATION
     Dosage: 10|25 MG, 0.5?0?0?0, TABLETTEN
     Route: 048
  6. SPASMOLYT [Concomitant]
     Active Substance: TROSPIUM CHLORIDE
     Dosage: NK MG, 0.5?0?0.5?0
     Route: 048
  7. PENTALONG [Concomitant]
     Active Substance: PENTAERYTHRITOL TETRANITRATE
     Dosage: 50 MG, 1?0?1?0, TABLETTEN
     Route: 048
  8. OXCARBAZEPIN [Concomitant]
     Active Substance: OXCARBAZEPINE
     Dosage: 900 MG, 1?0?1?0, TABLETTEN
     Route: 048
  9. PREGABALIN. [Concomitant]
     Active Substance: PREGABALIN
     Dosage: 75 MG, 1?0?1?0, TABLETTEN
     Route: 048
  10. NITRENDIPINE [Suspect]
     Active Substance: NITRENDIPINE
     Indication: PRODUCT USED FOR UNKNOWN INDICATION
     Dosage: 20 MG, 1?0?1?0
     Route: 048
  11. PANTOPRAZOL                        /01263201/ [Concomitant]
     Active Substance: PANTOPRAZOLE
     Dosage: 40 MG, 1?0?0?0, TABLETTEN
     Route: 048
  12. FUROSEMID                          /00032601/ [Concomitant]
     Active Substance: FUROSEMIDE
     Dosage: 40 MG, 1?0?0.5?0
     Route: 048
  13. LEVETIRACETAM. [Concomitant]
     Active Substance: LEVETIRACETAM
     Dosage: 500 MG, 1?0?1?0, TABLETTEN
     Route: 048
  14. BRILIQUE [Concomitant]
     Active Substance: TICAGRELOR
     Dosage: 90 MG, 1?0?1?0, TABLETTEN
     Route: 048
  15. CANDESARTAN. [Suspect]
     Active Substance: CANDESARTAN
     Indication: PRODUCT USED FOR UNKNOWN INDICATION
     Dosage: 32 MG, 0.5?0?0.5?0, TABLETTEN
     Route: 048
  16. GLAUPAX [Concomitant]
     Active Substance: ACETAZOLAMIDE
     Dosage: 250 MG, 4?0?0?0, TABLETTEN
     Route: 048
  17. EBRANTIL                           /00631801/ [Suspect]
     Active Substance: URAPIDIL
     Indication: PRODUCT USED FOR UNKNOWN INDICATION
     Dosage: 90 MG, 1?0?1?0
     Route: 048
  18. LEVOTHYROXIN [Concomitant]
     Active Substance: LEVOTHYROXINE
     Dosage: 50 ?G, 1?0?0?0, TABLETTEN
     Route: 048
  19. RANEXA [Concomitant]
     Active Substance: RANOLAZINE
     Dosage: 375 MG, 1?0?1?0, TABLETTEN
     Route: 048
  20. LEVETIRACETAM. [Concomitant]
     Active Substance: LEVETIRACETAM
     Dosage: 1000 MG, 1?0?1?0, TABLETTEN
     Route: 048
  21. ROPINIROL DURA [Concomitant]
     Dosage: 0.5 MG, 0?0?1?1, TABLETTEN
     Route: 048
  22. ACETYLSALICYLIC ACID [Concomitant]
     Active Substance: ASPIRIN
     Dosage: 100 MG, 1?0?0?0, TABLETTEN
     Route: 048

REACTIONS (5)
  - Hypotension [Unknown]
  - Dizziness [Unknown]
  - General physical health deterioration [Unknown]
  - Vomiting [Unknown]
  - Nausea [Unknown]

NARRATIVE: CASE EVENT DATE: 202006
